FAERS Safety Report 13333285 (Version 1)
Quarter: 2017Q1

REPORT INFORMATION
  Report Type: Spontaneous
  Country: FR (occurrence: FR)
  Receive Date: 20170313
  Receipt Date: 20170313
  Transmission Date: 20170428
  Serious: Yes (Other)
  Sender: FDA-Public Use
  Company Number: FR-MALLINCKRODT-T201700944

PATIENT
  Age: 35 Year
  Sex: Female

DRUGS (1)
  1. ULTRA-TECHNEKOW FM [Suspect]
     Active Substance: TECHNETIUM TC-99M SODIUM PERTECHNETATE
     Indication: PRODUCT USED FOR UNKNOWN INDICATION
     Dosage: 740 GBQ
     Route: 065
     Dates: start: 20111019, end: 20111019

REACTIONS (1)
  - Occupational exposure to radiation [Unknown]

NARRATIVE: CASE EVENT DATE: 20111019
